FAERS Safety Report 4350941-9 (Version None)
Quarter: 2004Q2

REPORT INFORMATION
  Report Type: 
  Country: None (occurrence: None)
  Receive Date: 20040430
  Receipt Date: 20040419
  Transmission Date: 20050107
  Serious: Yes (Other)
  Sender: FDA-Public Use
  Company Number: NO-GLAXOSMITHKLINE-B0330363A

PATIENT
  Age: 48 Year
  Sex: Male

DRUGS (5)
  1. SEROXAT [Suspect]
     Indication: DEPRESSION
     Dosage: 20MG PER DAY
     Dates: start: 20030702, end: 20040407
  2. TEGRETOL [Concomitant]
     Indication: ALCOHOLISM
  3. ANTABUSE [Concomitant]
     Indication: ALCOHOLISM
     Dosage: 200MG PER DAY
  4. NOZINAN [Concomitant]
     Indication: ALCOHOLISM
  5. VALLERGAN [Concomitant]
     Indication: ALCOHOLISM
     Dosage: 20MG PER DAY

REACTIONS (8)
  - DISABILITY [None]
  - DYSPHAGIA [None]
  - ERYTHEMA MULTIFORME [None]
  - FACE OEDEMA [None]
  - HERPES SIMPLEX [None]
  - PAIN [None]
  - RASH ERYTHEMATOUS [None]
  - SPEECH DISORDER [None]
